FAERS Safety Report 18330881 (Version 1)
Quarter: 2020Q3

REPORT INFORMATION
  Report Type: Report from Study
  Country: US (occurrence: US)
  Receive Date: 20200930
  Receipt Date: 20200930
  Transmission Date: 20201103
  Serious: Yes (Hospitalization)
  Sender: FDA-Public Use
  Company Number: US-JNJFOC-20200903873

PATIENT
  Age: 49 Year
  Sex: Female

DRUGS (1)
  1. MACITENTAN [Suspect]
     Active Substance: MACITENTAN
     Indication: PULMONARY ARTERIAL HYPERTENSION
     Dosage: 10 MG BY MOUTH DAILY
     Route: 048
     Dates: start: 20191122

REACTIONS (2)
  - Hospitalisation [Unknown]
  - Product dose omission issue [Unknown]
